FAERS Safety Report 9981158 (Version 1)
Quarter: 2014Q1

REPORT INFORMATION
  Report Type: Spontaneous
  Country: IT (occurrence: None)
  Receive Date: 20140305
  Receipt Date: 20140305
  Transmission Date: 20141002
  Serious: Yes (Congenital Anomaly)
  Sender: FDA-Public Use
  Company Number: 2014HINLIT0176

PATIENT
  Sex: 0

DRUGS (2)
  1. LITHIUM [Suspect]
     Indication: MATERNAL DRUGS AFFECTING FOETUS
     Route: 064
  2. FOLIC ACID [Concomitant]

REACTIONS (2)
  - Developmental hip dysplasia [None]
  - Maternal drugs affecting foetus [None]
